FAERS Safety Report 5977853-9 (Version None)
Quarter: 2008Q4

REPORT INFORMATION
  Report Type: 
  Country: None (occurrence: None)
  Receive Date: 20081203
  Receipt Date: 20071113
  Transmission Date: 20090506
  Serious: Yes (Hospitalization)
  Sender: FDA-Public Use
  Company Number: US-ROCHE-531436

PATIENT
  Sex: Female

DRUGS (5)
  1. BONIVA [Suspect]
     Indication: OSTEOPENIA
     Route: 065
     Dates: start: 20071104
  2. DIOVAN [Concomitant]
  3. LIPITOR [Concomitant]
  4. RENOVA [Concomitant]
  5. TRETINOIN [Concomitant]

REACTIONS (7)
  - ASTHENIA [None]
  - BACK PAIN [None]
  - BONE PAIN [None]
  - DEHYDRATION [None]
  - MYALGIA [None]
  - PAIN IN EXTREMITY [None]
  - VOMITING [None]
